FAERS Safety Report 6707370-X (Version None)
Quarter: 2010Q2

REPORT INFORMATION
  Report Type: 
  Country: None (occurrence: None)
  Receive Date: 20100503
  Receipt Date: 20100429
  Transmission Date: 20101027
  Serious: Yes (Other)
  Sender: FDA-Public Use
  Company Number: CHPA2010US07593

PATIENT
  Age: 8 Year
  Sex: Male
  Weight: 43.084 kg

DRUGS (2)
  1. TRIAMINIC CHEST + NASAL CONGESTION (NCH) [Suspect]
     Indication: UPPER RESPIRATORY TRACT INFECTION
     Dosage: 2 TSP, ONCE/SINGLE
     Route: 048
     Dates: start: 20100428, end: 20100428
  2. TRIAMINIC CHEST + NASAL CONGESTION (NCH) [Suspect]
     Indication: NASAL CONGESTION

REACTIONS (2)
  - DYSPNOEA [None]
  - WHEEZING [None]
